FAERS Safety Report 16673321 (Version 1)
Quarter: 2019Q3

REPORT INFORMATION
  Report Type: Spontaneous
  Country: US (occurrence: US)
  Receive Date: 20190620
  Receipt Date: 20190620
  Transmission Date: 20191004
  Serious: No
  Sender: FDA-Public Use
  Company Number: None

PATIENT
  Age: 70 Year
  Sex: Female

DRUGS (3)
  1. NINLARO [Suspect]
     Active Substance: IXAZOMIB CITRATE
     Indication: PLASMA CELL MYELOMA
     Route: 048
     Dates: start: 20160601
  2. REVLIMID [Suspect]
     Active Substance: LENALIDOMIDE
  3. DEXAMETHASONE. [Suspect]
     Active Substance: DEXAMETHASONE

REACTIONS (2)
  - Diarrhoea [None]
  - Dehydration [None]

NARRATIVE: CASE EVENT DATE: 20190620
